FAERS Safety Report 5551604-4 (Version None)
Quarter: 2007Q4

REPORT INFORMATION
  Report Type: 
  Country: None (occurrence: None)
  Receive Date: 20071212
  Receipt Date: 20071130
  Transmission Date: 20080405
  Serious: Yes (Other)
  Sender: FDA-Public Use
  Company Number: US-PFIZER INC-2007054102

PATIENT
  Sex: Female
  Weight: 57.2 kg

DRUGS (12)
  1. LYRICA [Suspect]
     Indication: NEURALGIA
     Route: 048
  2. LYRICA [Suspect]
     Indication: NEUROPATHY PERIPHERAL
  3. LYRICA [Suspect]
     Indication: PAIN
  4. NEURONTIN [Suspect]
     Indication: NEURALGIA
  5. LASIX [Concomitant]
  6. FOSAMAX [Concomitant]
  7. DILAUDID [Concomitant]
  8. CLARITIN [Concomitant]
  9. LOVASTATIN [Concomitant]
  10. PREDNISONE [Concomitant]
  11. PROTONIX [Concomitant]
  12. SPIRONOLACTONE [Concomitant]

REACTIONS (5)
  - DRUG INEFFECTIVE [None]
  - HALLUCINATION [None]
  - HYPERSOMNIA [None]
  - NEURALGIA [None]
  - SOMNOLENCE [None]
